FAERS Safety Report 8515260-5 (Version None)
Quarter: 2012Q3

REPORT INFORMATION
  Report Type: 
  Country: None (occurrence: None)
  Receive Date: 20120717
  Receipt Date: 20120713
  Transmission Date: 20120928
  Serious: Yes (Life-Threatening)
  Sender: FDA-Public Use
  Company Number: US-B.I. PHARMACEUTICALS,INC./RIDGEFIELD-2011-RU-00009BP

PATIENT
  Sex: Male
  Weight: 143 kg

DRUGS (4)
  1. INSULIN U-500 [Suspect]
     Indication: TYPE 2 DIABETES MELLITUS
     Dosage: 120 U
     Route: 058
  2. BI 1356 [Suspect]
     Indication: TYPE 2 DIABETES MELLITUS
     Dosage: 5 MG
     Route: 048
     Dates: start: 20100812
  3. TRIAL PROCEDURE [Suspect]
     Indication: TYPE 2 DIABETES MELLITUS
  4. U-100 INSULIN [Suspect]
     Indication: TYPE 2 DIABETES MELLITUS
     Dosage: 25 U
     Route: 058

REACTIONS (2)
  - HYPOGLYCAEMIA [None]
  - ROAD TRAFFIC ACCIDENT [None]
